FAERS Safety Report 7183419-8 (Version None)
Quarter: 2010Q4

REPORT INFORMATION
  Report Type: 
  Country: None (occurrence: None)
  Receive Date: 20101220
  Receipt Date: 20101220
  Transmission Date: 20110411
  Serious: Yes (Other)
  Sender: FDA-Public Use
  Company Number: None

PATIENT
  Age: 80 Year
  Sex: Female
  Weight: 61.6892 kg

DRUGS (2)
  1. SINEMET [Suspect]
     Indication: PARKINSON'S DISEASE
     Dosage: 25/100 Q 3 HOURS PO
     Route: 048
     Dates: start: 19930616
  2. CARBIDOPA AND LEVODOPA [Suspect]
     Dosage: 25/100 Q 3 HOURS PO
     Route: 048
     Dates: start: 20070101, end: 20071015

REACTIONS (2)
  - MOBILITY DECREASED [None]
  - PRODUCT SUBSTITUTION ISSUE [None]
